FAERS Safety Report 14923166 (Version 1)
Quarter: 2018Q2

REPORT INFORMATION
  Report Type: Spontaneous
  Country: US (occurrence: US)
  Receive Date: 20180522
  Receipt Date: 20180522
  Transmission Date: 20180711
  Serious: No
  Sender: FDA-Public Use
  Company Number: PHEH2018US019768

PATIENT
  Sex: Male

DRUGS (1)
  1. ENTRESTO [Suspect]
     Active Substance: SACUBITRIL\VALSARTAN
     Indication: CARDIAC FAILURE CHRONIC
     Dosage: UNK UNK, BID (TWICE A DAY)
     Route: 048
     Dates: start: 20180419, end: 20180503

REACTIONS (1)
  - Rash [Unknown]

NARRATIVE: CASE EVENT DATE: 20180419
